FAERS Safety Report 7587519-X (Version None)
Quarter: 2011Q3

REPORT INFORMATION
  Report Type: 
  Country: None (occurrence: None)
  Receive Date: 20110704
  Receipt Date: 20110620
  Transmission Date: 20111222
  Serious: Yes (Hospitalization)
  Sender: FDA-Public Use
  Company Number: US-ELI_LILLY_AND_COMPANY-US201106006987

PATIENT
  Sex: Female

DRUGS (15)
  1. CELEXA [Concomitant]
  2. PRILOSEC [Concomitant]
  3. FORTEO [Suspect]
     Dosage: 20 UG, QD
  4. HUMULIN 70/30 [Concomitant]
  5. CALCIUM CARBONATE [Concomitant]
  6. VITAMIN D [Concomitant]
  7. VITRON C [Concomitant]
  8. FORTEO [Suspect]
     Indication: OSTEOPOROSIS
     Dosage: 20 UG, QD
     Dates: start: 20100201
  9. ARICEPT [Concomitant]
  10. ATACAND [Concomitant]
  11. SENOKOT [Concomitant]
  12. TRAZODONE HCL [Concomitant]
  13. MEVACOR [Concomitant]
  14. SYNTHROID [Concomitant]
  15. ASPIRIN [Concomitant]

REACTIONS (6)
  - CONFUSIONAL STATE [None]
  - ANAESTHETIC COMPLICATION [None]
  - HAEMOGLOBIN DECREASED [None]
  - BLADDER DISORDER [None]
  - DRUG DOSE OMISSION [None]
  - MEMORY IMPAIRMENT [None]
